FAERS Safety Report 5765306-2 (Version None)
Quarter: 2008Q2

REPORT INFORMATION
  Report Type: 
  Country: None (occurrence: None)
  Receive Date: 20080609
  Receipt Date: 20080609
  Transmission Date: 20081010
  Serious: Yes (Other)
  Sender: FDA-Public Use
  Company Number: None

PATIENT
  Age: 69 Year
  Sex: Male
  Weight: 68.9467 kg

DRUGS (1)
  1. ZOLOFT [Suspect]
     Indication: STRESS

REACTIONS (7)
  - DRUG WITHDRAWAL SYNDROME [None]
  - DYSPNOEA [None]
  - FEELING ABNORMAL [None]
  - INTERVERTEBRAL DISCITIS [None]
  - OSTEOMYELITIS [None]
  - POTENTIATING DRUG INTERACTION [None]
  - UPPER RESPIRATORY TRACT CONGESTION [None]
